FAERS Safety Report 7323804-4 (Version None)
Quarter: 2011Q1

REPORT INFORMATION
  Report Type: 
  Country: None (occurrence: None)
  Receive Date: 20110301
  Receipt Date: 20110222
  Transmission Date: 20110831
  Serious: Yes (Other)
  Sender: FDA-Public Use
  Company Number: A0869791A

PATIENT
  Age: 43 Year
  Sex: Female

DRUGS (2)
  1. AVANDIA [Suspect]
     Dosage: 4MG PER DAY
     Route: 048
     Dates: start: 20000101, end: 20040101
  2. AVANDAMET [Suspect]
     Route: 048
     Dates: start: 20040101, end: 20080101

REACTIONS (7)
  - DIZZINESS [None]
  - DYSPNOEA [None]
  - MYOCARDIAL INFARCTION [None]
  - HEADACHE [None]
  - HEART RATE IRREGULAR [None]
  - BACK PAIN [None]
  - CHEST PAIN [None]
